FAERS Safety Report 6753660-4 (Version None)
Quarter: 2010Q2

REPORT INFORMATION
  Report Type: 
  Country: None (occurrence: None)
  Receive Date: 20100603
  Receipt Date: 20100517
  Transmission Date: 20101027
  Serious: Yes (Hospitalization)
  Sender: FDA-Public Use
  Company Number: JP-SANOFI-AVENTIS-2010SA028882

PATIENT
  Age: 94 Year
  Sex: Female

DRUGS (4)
  1. LASIX [Suspect]
     Dosage: START DATE: AT LEAST 2 YEARS AGO
     Route: 048
     Dates: end: 20100515
  2. LASIX [Suspect]
     Route: 048
     Dates: start: 20100517
  3. DIOVAN [Concomitant]
     Indication: HYPERTENSION
     Dosage: START DATE: QUITE A LONG TIME AGO
     Dates: end: 20100515
  4. DIOVAN [Concomitant]
     Dates: start: 20100517

REACTIONS (1)
  - HAEMOGLOBIN DECREASED [None]
